FAERS Safety Report 21656491 (Version 1)
Quarter: 2022Q4

REPORT INFORMATION
  Report Type: Spontaneous
  Country: US (occurrence: None)
  Receive Date: 20221128
  Receipt Date: 20221128
  Transmission Date: 20230112
  Serious: Yes (Hospitalization)
  Sender: FDA-Public Use
  Company Number: None

PATIENT
  Age: 78 Year
  Sex: Female
  Weight: 92.53 kg

DRUGS (14)
  1. IMATINIB MESYLATE [Suspect]
     Active Substance: IMATINIB MESYLATE
     Indication: Chronic myeloid leukaemia
     Dosage: 400MG DAILY ORAL
     Route: 048
  2. ASPIRIN [Concomitant]
  3. ATORVASTATIN [Concomitant]
  4. CALCIUM [Concomitant]
     Active Substance: CALCIUM
  5. LACTOBACILLUS ACIDOPHILUS [Concomitant]
     Active Substance: LACTOBACILLUS ACIDOPHILUS
  6. LEVOTHYROXINE [Concomitant]
  7. LUTEIN [Concomitant]
     Active Substance: LUTEIN
  8. SALINE MIST SPRAY [Concomitant]
  9. STIOLTO RESPIMAT [Concomitant]
  10. TIZANIDINE [Concomitant]
  11. VITAMIN A [Concomitant]
  12. VITAMIN C [Concomitant]
  13. VITAMIN D3 [Concomitant]
  14. ZINC SULFATE [Concomitant]

REACTIONS (1)
  - Fluid retention [None]

NARRATIVE: CASE EVENT DATE: 20221125
